FAERS Safety Report 9887531 (Version 1)
Quarter: 2013Q4

REPORT INFORMATION
  Report Type: Spontaneous
  Country: US (occurrence: None)
  Receive Date: 20131223
  Receipt Date: 20131223
  Transmission Date: 20140711
  Serious: No
  Sender: FDA-Public Use
  Company Number: 217476LEO

PATIENT
  Sex: Male

DRUGS (1)
  1. PICATO (0.015 %, GEL) [Suspect]
     Indication: ACTINIC KERATOSIS
     Dosage: GEL, 1 IN 1 D, ON FACE
     Dates: start: 20120405, end: 20120407

REACTIONS (4)
  - Application site pruritus [None]
  - Application site burn [None]
  - Dermatitis contact [None]
  - Application site oedema [None]
